FAERS Safety Report 5844679-6 (Version None)
Quarter: 2008Q3

REPORT INFORMATION
  Report Type: 
  Country: None (occurrence: None)
  Receive Date: 20080812
  Receipt Date: 20080801
  Transmission Date: 20090109
  Serious: Yes (Hospitalization)
  Sender: FDA-Public Use
  Company Number: 2008-02697

PATIENT
  Age: 74 Year
  Sex: Male

DRUGS (6)
  1. VELCADE [Suspect]
     Indication: MULTIPLE MYELOMA
     Dosage: 1.3 MG/M2, INTRAVENOUS
     Route: 042
     Dates: start: 20080517, end: 20080616
  2. ACYCLOVIR [Concomitant]
  3. SEPTIN [Concomitant]
  4. LANSOPRAZOLE [Concomitant]
  5. DEXAMETHASONE TAB [Concomitant]
  6. ONDANSETRON HCL [Concomitant]

REACTIONS (1)
  - DRUG INEFFECTIVE [None]
